FAERS Safety Report 4887696-5 (Version None)
Quarter: 2006Q1

REPORT INFORMATION
  Report Type: 
  Country: None (occurrence: None)
  Receive Date: 20060119
  Receipt Date: 20060119
  Transmission Date: 20060701
  Serious: Yes (Hospitalization)
  Sender: FDA-Public Use
  Company Number: None

PATIENT
  Age: 60 Year
  Sex: Male
  Weight: 93.6 kg

DRUGS (1)
  1. LEVOTHYROXINE 0.15MG TABLETS [Suspect]
     Indication: HYPOTHYROIDISM
     Dosage: 0.15MG BY MOUTH DAILY
     Route: 048
     Dates: start: 20051123, end: 20051204

REACTIONS (2)
  - BLOOD THYROID STIMULATING HORMONE DECREASED [None]
  - MUSCULAR WEAKNESS [None]
